FAERS Safety Report 4592086-9 (Version None)
Quarter: 2005Q1

REPORT INFORMATION
  Report Type: 
  Country: None (occurrence: None)
  Receive Date: 20050125
  Receipt Date: 20040909
  Transmission Date: 20050727
  Serious: No
  Sender: FDA-Public Use
  Company Number: USA040773684

PATIENT
  Age: 79 Year
  Sex: Female
  Weight: 52 kg

DRUGS (3)
  1. FORTEO [Suspect]
     Indication: OSTEOPOROSIS
     Dosage: 20 UG DAY
     Dates: start: 20040601
  2. NORVASC [Concomitant]
  3. DIOVAN [Concomitant]

REACTIONS (3)
  - BLOOD PRESSURE INCREASED [None]
  - PAIN IN EXTREMITY [None]
  - SENSATION OF HEAVINESS [None]
